FAERS Safety Report 7579215-X (Version None)
Quarter: 2011Q2

REPORT INFORMATION
  Report Type: 
  Country: None (occurrence: None)
  Receive Date: 20110628
  Receipt Date: 20110616
  Transmission Date: 20111010
  Serious: Yes (Hospitalization)
  Sender: FDA-Public Use
  Company Number: US-ELI_LILLY_AND_COMPANY-US201106007233

PATIENT
  Age: 36 Year
  Sex: Male

DRUGS (4)
  1. ZYPREXA [Suspect]
     Dosage: 5 MG, QD
  2. ZYPREXA [Suspect]
     Dosage: 10 MG, QD
  3. ZYPREXA [Suspect]
     Dosage: 7.5 MG, QD
  4. ZYPREXA [Suspect]
     Dosage: 5 MG, QD
     Dates: start: 20101201

REACTIONS (1)
  - HOSPITALISATION [None]
